FAERS Safety Report 8542489-2 (Version None)
Quarter: 2012Q3

REPORT INFORMATION
  Report Type: 
  Country: None (occurrence: None)
  Receive Date: 20120726
  Receipt Date: 20111117
  Transmission Date: 20120928
  Serious: Yes (Disabling, Other)
  Sender: FDA-Public Use
  Company Number: US-ASTRAZENECA-2010SE40393

PATIENT
  Age: 57 Year
  Sex: Female
  Weight: 86.2 kg

DRUGS (30)
  1. SEROQUEL [Suspect]
     Route: 048
     Dates: start: 20100601, end: 20100825
  2. SEROQUEL [Suspect]
     Route: 048
  3. PROGESTERONE [Concomitant]
  4. ZOLPIDEM [Concomitant]
  5. SEROQUEL [Suspect]
     Route: 048
     Dates: start: 20100601, end: 20100825
  6. SEROQUEL [Suspect]
     Route: 048
  7. SEROQUEL [Suspect]
     Route: 048
  8. THYROID TAB [Concomitant]
  9. LORAZEPAM [Concomitant]
  10. SEROQUEL [Suspect]
     Route: 048
  11. ESTROGEN PATCH [Concomitant]
  12. CLONAZEPAM [Concomitant]
  13. THYROID MEDICATION [Concomitant]
  14. VIVELLE-DOT [Concomitant]
  15. SEROQUEL [Suspect]
     Route: 048
     Dates: start: 20100825
  16. SEROQUEL [Suspect]
     Route: 048
  17. VISTARIL [Concomitant]
  18. SEROQUEL [Suspect]
     Indication: PANIC ATTACK
     Route: 048
     Dates: start: 20090101
  19. SEROQUEL [Suspect]
     Indication: CONVERSION DISORDER
     Route: 048
     Dates: start: 20090101
  20. SEROQUEL [Suspect]
     Route: 048
     Dates: start: 20100601, end: 20100825
  21. SEROQUEL [Suspect]
     Route: 048
     Dates: start: 20100825
  22. SEROQUEL [Suspect]
     Route: 048
  23. OXYCONTIN [Concomitant]
  24. SEROQUEL [Suspect]
     Indication: BIPOLAR II DISORDER
     Route: 048
     Dates: start: 20090101
  25. SEROQUEL [Suspect]
     Indication: DEPENDENCE
     Route: 048
     Dates: start: 20090101
  26. SEROQUEL [Suspect]
     Route: 048
     Dates: start: 20100825
  27. SEROQUEL [Suspect]
     Route: 048
  28. SEROQUEL [Suspect]
     Route: 048
  29. SEROQUEL [Suspect]
     Route: 048
     Dates: start: 20100601, end: 20100825
  30. SEROQUEL [Suspect]
     Route: 048
     Dates: start: 20100825

REACTIONS (20)
  - SUICIDAL IDEATION [None]
  - HOT FLUSH [None]
  - WITHDRAWAL SYNDROME [None]
  - BLOOD PRESSURE INCREASED [None]
  - CRYING [None]
  - BRONCHITIS [None]
  - INCORRECT DOSE ADMINISTERED [None]
  - MEMORY IMPAIRMENT [None]
  - GASTROENTERITIS VIRAL [None]
  - VOMITING [None]
  - ANXIETY DISORDER [None]
  - SCOLIOSIS [None]
  - PANIC DISORDER [None]
  - HYPOTHYROIDISM [None]
  - DRUG DOSE OMISSION [None]
  - APHAGIA [None]
  - METAMORPHOPSIA [None]
  - ABDOMINAL PAIN UPPER [None]
  - CHILLS [None]
  - BIPOLAR DISORDER [None]
